FAERS Safety Report 5827005-8 (Version None)
Quarter: 2008Q3

REPORT INFORMATION
  Report Type: 
  Country: None (occurrence: None)
  Receive Date: 20080730
  Receipt Date: 20080729
  Transmission Date: 20090109
  Serious: Yes (Other)
  Sender: FDA-Public Use
  Company Number: A0732649A

PATIENT
  Age: 26 Year
  Sex: Female

DRUGS (2)
  1. ALLI [Suspect]
  2. STEROIDS [Suspect]
     Indication: ASTHMA
     Route: 065

REACTIONS (7)
  - ASTHMA [None]
  - BINGE EATING [None]
  - EATING DISORDER [None]
  - GASTROINTESTINAL DISORDER [None]
  - HUNGER [None]
  - INITIAL INSOMNIA [None]
  - WEIGHT INCREASED [None]
